FAERS Safety Report 7320208-5 (Version None)
Quarter: 2011Q1

REPORT INFORMATION
  Report Type: 
  Country: None (occurrence: None)
  Receive Date: 20110228
  Receipt Date: 20110215
  Transmission Date: 20110831
  Serious: Yes (Hospitalization)
  Sender: FDA-Public Use
  Company Number: US-ELI_LILLY_AND_COMPANY-US201102005130

PATIENT
  Sex: Male
  Weight: 38.9 kg

DRUGS (7)
  1. VALPROATE SODIUM [Concomitant]
     Indication: CONVULSION
     Dates: start: 20050321
  2. PREVACID [Concomitant]
     Indication: REFLUX OESOPHAGITIS
     Dates: start: 20070320
  3. BACLOFEN [Concomitant]
     Indication: MUSCLE SPASTICITY
     Dates: start: 19980812
  4. HYDROCORTISONE [Concomitant]
     Indication: ADRENAL INSUFFICIENCY
     Dates: start: 19970401
  5. LEVOTHYROXINE SODIUM [Concomitant]
     Indication: HYPOTHYROIDISM
  6. LACTULOSE [Concomitant]
     Indication: CONSTIPATION
     Dates: start: 19980805
  7. SOMATROPIN [Suspect]
     Indication: HYPOTHALAMO-PITUITARY DISORDER
     Dosage: 0.65 MG, DAILY (1/D)
     Route: 058
     Dates: start: 19981127

REACTIONS (3)
  - VIRAL INFECTION [None]
  - VOMITING [None]
  - ALTERED STATE OF CONSCIOUSNESS [None]
